FAERS Safety Report 25810543 (Version 2)
Quarter: 2025Q4

REPORT INFORMATION
  Report Type: Spontaneous
  Country: JP (occurrence: JP)
  Receive Date: 20250917
  Receipt Date: 20251020
  Transmission Date: 20260118
  Serious: Yes (Other)
  Sender: NOVARTIS
  Company Number: JP-002147023-NVSJ2025JP009119

PATIENT
  Age: 76 Year
  Sex: Female
  Weight: 51.6 kg

DRUGS (3)
  1. TABRECTA [Suspect]
     Active Substance: CAPMATINIB
     Indication: Non-small cell lung cancer stage IV
     Dosage: 400 MG
     Route: 048
     Dates: start: 20241009, end: 20241120
  2. TABRECTA [Suspect]
     Active Substance: CAPMATINIB
     Indication: MET exon 14 skipping mutation positive
     Dosage: 300 MG
     Route: 048
     Dates: start: 20241204, end: 20241211
  3. TABRECTA [Suspect]
     Active Substance: CAPMATINIB
     Dosage: 200 MG
     Route: 048
     Dates: start: 20241218

REACTIONS (2)
  - Liver disorder [Recovered/Resolved]
  - Liver disorder [Recovering/Resolving]

NARRATIVE: CASE EVENT DATE: 20241120
